FAERS Safety Report 10202214 (Version 1)
Quarter: 2014Q2

REPORT INFORMATION
  Report Type: Spontaneous
  Country: GB (occurrence: GB)
  Receive Date: 20140528
  Receipt Date: 20140528
  Transmission Date: 20141212
  Serious: Yes (Hospitalization, Other)
  Sender: FDA-Public Use
  Company Number: GB-WATSON-2014-11251

PATIENT
  Age: 55 Year
  Sex: Female

DRUGS (4)
  1. TRIAMCINOLONE DIACETATE [Suspect]
     Indication: POST HERPETIC NEURALGIA
     Dosage: 80 MG, UNK
     Route: 008
  2. ATAZANAVIR W/RITONAVIR [Interacting]
     Indication: HIV INFECTION
     Dosage: UNKNOWN
     Route: 065
  3. TENOFOVIR [Concomitant]
     Indication: HIV INFECTION
     Dosage: UNKNOWN
     Route: 065
  4. EMTRICITABINE [Concomitant]
     Indication: HIV INFECTION
     Dosage: UNKNOWN
     Route: 065

REACTIONS (2)
  - Cushing^s syndrome [Unknown]
  - Drug interaction [Unknown]
